FAERS Safety Report 10573307 (Version 1)
Quarter: 2014Q4

REPORT INFORMATION
  Report Type: Spontaneous
  Country: US (occurrence: None)
  Receive Date: 20141030
  Receipt Date: 20141030
  Transmission Date: 20150529
  Serious: Yes (Other)
  Sender: FDA-Public Use
  Company Number: PHEH2014US011962

PATIENT
  Sex: Female

DRUGS (6)
  1. CALCIUM [Concomitant]
     Active Substance: CALCIUM
  2. VITAMIN D (ERGOCALCIFEROL) [Concomitant]
     Active Substance: ERGOCALCIFEROL
  3. RANITIDINE [Concomitant]
     Active Substance: RANITIDINE\RANITIDINE HYDROCHLORIDE
  4. RECLAST [Suspect]
     Active Substance: ZOLEDRONIC ACID
     Indication: OSTEOPOROSIS
     Dosage: 5 MG PER 100 ML, INTRAVENOUS
     Route: 042
     Dates: start: 20140527
  5. VITAMIN C [Concomitant]
     Active Substance: ASCORBIC ACID
  6. COLCRYS [Concomitant]
     Active Substance: COLCHICINE

REACTIONS (2)
  - Blood pressure increased [None]
  - Fatigue [None]

NARRATIVE: CASE EVENT DATE: 20140527
